FAERS Safety Report 20893740 (Version 1)
Quarter: 2022Q2

REPORT INFORMATION
  Report Type: Report from Study
  Country: FR (occurrence: FR)
  Receive Date: 20220531
  Receipt Date: 20220531
  Transmission Date: 20220721
  Serious: Yes (Other)
  Sender: FDA-Public Use
  Company Number: FR-002147023-NVSC2022FR109992

PATIENT
  Age: 53 Year
  Sex: Male

DRUGS (7)
  1. AMOXICILLIN [Suspect]
     Active Substance: AMOXICILLIN
     Indication: Product used for unknown indication
     Dosage: UNK
     Route: 065
  2. CEFTRIAXONE [Concomitant]
     Active Substance: CEFTRIAXONE
     Indication: Product used for unknown indication
     Dosage: UNK
     Route: 065
  3. CEFOTAXIME [Concomitant]
     Active Substance: CEFOTAXIME SODIUM
     Indication: Product used for unknown indication
     Dosage: UNK
     Route: 065
  4. CEFAZOLIN SODIUM [Concomitant]
     Active Substance: CEFAZOLIN SODIUM
     Indication: Product used for unknown indication
     Dosage: UNK
     Route: 065
  5. CEFUROXIME [Concomitant]
     Active Substance: CEFUROXIME
     Indication: Product used for unknown indication
     Dosage: UNK
     Route: 065
  6. EXTENCILLIN [Concomitant]
     Indication: Product used for unknown indication
     Dosage: UNK
     Route: 065
  7. IOHEXOL [Concomitant]
     Active Substance: IOHEXOL
     Indication: Product used for unknown indication
     Dosage: UNK
     Route: 065

REACTIONS (1)
  - Skin test positive [Unknown]
